FAERS Safety Report 11720325 (Version 1)
Quarter: 2015Q4

REPORT INFORMATION
  Report Type: Spontaneous
  Country: CO (occurrence: CO)
  Receive Date: 20151110
  Receipt Date: 20151110
  Transmission Date: 20160304
  Serious: Yes (Death, Hospitalization, Other)
  Sender: FDA-Public Use
  Company Number: CO-VIIV HEALTHCARE LIMITED-CO2015GSK113063

PATIENT
  Sex: Female
  Weight: 44 kg

DRUGS (3)
  1. TIVICAY [Suspect]
     Active Substance: DOLUTEGRAVIR SODIUM
     Indication: HIV INFECTION
     Dosage: 50 MG, QD
     Route: 048
     Dates: start: 20150607, end: 20151024
  2. TENOFOVIR [Concomitant]
     Active Substance: TENOFOVIR
  3. EMTRICITABINE [Concomitant]
     Active Substance: EMTRICITABINE

REACTIONS (5)
  - Stillbirth [Unknown]
  - HIV infection [Fatal]
  - Adverse event [Unknown]
  - Exposure during pregnancy [Unknown]
  - Tuberculosis [Fatal]

NARRATIVE: CASE EVENT DATE: 20150607
